FAERS Safety Report 6377580-2 (Version None)
Quarter: 2009Q3

REPORT INFORMATION
  Report Type: 
  Country: None (occurrence: None)
  Receive Date: 20090925
  Receipt Date: 20090917
  Transmission Date: 20100115
  Serious: Yes (Other)
  Sender: FDA-Public Use
  Company Number: US-TYCO HEALTHCARE/MALLINCKRODT-T200901741

PATIENT

DRUGS (1)
  1. METHADOSE [Suspect]

REACTIONS (1)
  - DRUG PRESCRIBING ERROR [None]
